FAERS Safety Report 6233840-7 (Version None)
Quarter: 2009Q2

REPORT INFORMATION
  Report Type: 
  Country: None (occurrence: None)
  Receive Date: 20090618
  Receipt Date: 20090511
  Transmission Date: 20091009
  Serious: No
  Sender: FDA-Public Use
  Company Number: A0778096A

PATIENT
  Age: 58 Year
  Sex: Female

DRUGS (7)
  1. PROMACTA [Suspect]
     Indication: IDIOPATHIC THROMBOCYTOPENIC PURPURA
     Dosage: 50MG PER DAY
     Route: 048
     Dates: start: 20090409
  2. LISINOPRIL [Concomitant]
  3. NORVASC [Concomitant]
  4. METOPROLOL SUCCINATE [Concomitant]
  5. HYDROCHLOROTHIAZIDE [Concomitant]
  6. PREDNISONE [Concomitant]
  7. SALESE [Concomitant]

REACTIONS (5)
  - ABDOMINAL DISTENSION [None]
  - BLOOD PRESSURE INCREASED [None]
  - CHEST DISCOMFORT [None]
  - DIZZINESS [None]
  - NAUSEA [None]
